FAERS Safety Report 7558466-4 (Version None)
Quarter: 2011Q2

REPORT INFORMATION
  Report Type: 
  Country: None (occurrence: None)
  Receive Date: 20110620
  Receipt Date: 20110613
  Transmission Date: 20111010
  Serious: Yes (Other)
  Sender: FDA-Public Use
  Company Number: JP-B.I. PHARMACEUTICALS,INC./RIDGEFIELD-2011-BP-14370NB

PATIENT
  Age: 78 Year
  Sex: Female

DRUGS (4)
  1. UNKNOWN / ANTIARRHYTHMIC AGENTS [Concomitant]
     Route: 048
     Dates: start: 20090101
  2. PRADAXA [Suspect]
     Dosage: 220 MG
     Route: 048
     Dates: start: 20110514, end: 20110517
  3. DIGOXIN [Concomitant]
     Route: 048
     Dates: start: 20090101
  4. UNKNOWN / ARB [Concomitant]
     Route: 048
     Dates: start: 20090101

REACTIONS (4)
  - OESOPHAGEAL DISCOMFORT [None]
  - OESOPHAGEAL PAIN [None]
  - THROAT IRRITATION [None]
  - DYSPHAGIA [None]
